FAERS Safety Report 10241019 (Version 1)
Quarter: 2014Q2

REPORT INFORMATION
  Report Type: Other
  Country: GB (occurrence: GB)
  Receive Date: 20140617
  Receipt Date: 20140617
  Transmission Date: 20141212
  Serious: Yes (Other)
  Sender: FDA-Public Use
  Company Number: GB-ASTELLAS-2014EU007304

PATIENT
  Age: 64 Year
  Sex: Female
  Weight: 33 kg

DRUGS (2)
  1. MIRABEGRON [Suspect]
     Indication: MICTURITION URGENCY
     Route: 048
  2. CO-DYDRAMOL [Concomitant]
     Indication: PRODUCT USED FOR UNKNOWN INDICATION
     Dosage: UNK, UNKNOWN FREQ.
     Route: 065

REACTIONS (3)
  - Memory impairment [Recovered/Resolved with Sequelae]
  - Aphasia [Unknown]
  - Condition aggravated [Unknown]
